FAERS Safety Report 7762688-7 (Version None)
Quarter: 2011Q3

REPORT INFORMATION
  Report Type: 
  Country: None (occurrence: None)
  Receive Date: 20110920
  Receipt Date: 20110815
  Transmission Date: 20111222
  Serious: Yes (Other)
  Sender: FDA-Public Use
  Company Number: DE-UCBSA-038967

PATIENT
  Sex: Female
  Weight: 65 kg

DRUGS (3)
  1. MADOPAR [Concomitant]
     Indication: RESTLESS LEGS SYNDROME
     Dosage: TOTAL DAILY DOSE:100/25
     Dates: start: 20070101
  2. ROPINIROLE HYDROCHLORIDE [Concomitant]
     Indication: RESTLESS LEGS SYNDROME
     Dates: start: 20090101
  3. NEUPRO [Suspect]
     Indication: RESTLESS LEGS SYNDROME
     Dosage: 3 MG/24H
     Route: 062
     Dates: start: 20110101

REACTIONS (4)
  - APPLICATION SITE REACTION [None]
  - APPLICATION SITE VESICLES [None]
  - APPLICATION SITE ERYTHEMA [None]
  - APPLICATION SITE PAIN [None]
